FAERS Safety Report 8309823-X (Version None)
Quarter: 2012Q2

REPORT INFORMATION
  Report Type: 
  Country: None (occurrence: None)
  Receive Date: 20120425
  Receipt Date: 20120420
  Transmission Date: 20120825
  Serious: Yes (Death)
  Sender: FDA-Public Use
  Company Number: PHEH2012US006463

PATIENT
  Sex: Female
  Weight: 52.154 kg

DRUGS (1)
  1. SANDOSTATIN LAR [Suspect]
     Indication: CROHN'S DISEASE
     Dosage: 20 MG, QMO
     Route: 030

REACTIONS (1)
  - DEATH [None]
